FAERS Safety Report 23651767 (Version 1)
Quarter: 2024Q1

REPORT INFORMATION
  Report Type: Spontaneous
  Country: US (occurrence: US)
  Receive Date: 20240320
  Receipt Date: 20240320
  Transmission Date: 20240409
  Serious: Yes (Hospitalization, Other)
  Sender: FDA-Public Use
  Company Number: US-SUN PHARMACEUTICAL INDUSTRIES LTD-2024R1-436753

PATIENT
  Age: 57 Year
  Sex: Female

DRUGS (5)
  1. SODIUM CHLORIDE [Suspect]
     Active Substance: SODIUM CHLORIDE
     Indication: Squamous cell carcinoma
     Dosage: 1 LITER
     Route: 065
  2. ALBUMIN HUMAN [Suspect]
     Active Substance: ALBUMIN HUMAN
     Indication: Squamous cell carcinoma
     Dosage: 100 GRAM
     Route: 065
  3. DEXAMETHASONE [Suspect]
     Active Substance: DEXAMETHASONE
     Indication: Squamous cell carcinoma
     Dosage: 10 MILLIGRAM X 2
     Route: 042
  4. LACTATED RINGERS SOLUTION [Suspect]
     Active Substance: CALCIUM CHLORIDE\POTASSIUM CHLORIDE\SODIUM CHLORIDE\SODIUM LACTATE
     Indication: Squamous cell carcinoma
     Dosage: 1 LITER
     Route: 065
  5. SODIUM BICARBONATE [Suspect]
     Active Substance: SODIUM BICARBONATE
     Indication: Squamous cell carcinoma
     Dosage: 50 MILLIEQUIVALENT ( 1 AMPULE)
     Route: 065

REACTIONS (2)
  - Drug ineffective [Unknown]
  - Euglycaemic diabetic ketoacidosis [Recovered/Resolved]
